FAERS Safety Report 5919488-X (Version None)
Quarter: 2008Q4

REPORT INFORMATION
  Report Type: 
  Country: None (occurrence: None)
  Receive Date: 20081015
  Receipt Date: 20081003
  Transmission Date: 20090506
  Serious: Yes (Hospitalization)
  Sender: FDA-Public Use
  Company Number: BE-ELI_LILLY_AND_COMPANY-BE200810001704

PATIENT
  Age: 37 Year
  Sex: Female

DRUGS (4)
  1. PROZAC [Suspect]
     Dosage: UNK, UNKNOWN
     Route: 065
  2. TRAZODONE HCL [Interacting]
     Dosage: UNK, UNKNOWN
     Route: 065
  3. TRAZODONE HCL [Interacting]
     Dosage: 2000 MG, UNKNOWN
     Route: 065
  4. FUROSEMIDE [Concomitant]
     Dosage: UNK, UNKNOWN
     Route: 065

REACTIONS (7)
  - BRADYCARDIA [None]
  - DRUG INTERACTION [None]
  - ELECTROCARDIOGRAM QT PROLONGED [None]
  - HYPOKALAEMIA [None]
  - HYPOMAGNESAEMIA [None]
  - HYPOTENSION [None]
  - TORSADE DE POINTES [None]
